FAERS Safety Report 24224221 (Version 1)
Quarter: 2024Q3

REPORT INFORMATION
  Report Type: Spontaneous
  Country: CN (occurrence: CN)
  Receive Date: 20240819
  Receipt Date: 20240819
  Transmission Date: 20241016
  Serious: Yes (Hospitalization, Other)
  Sender: DAIICHI
  Company Number: CN-DAIICHI SANKYO, INC.-DSJ-2024-140662

PATIENT
  Age: 54 Year
  Sex: Male
  Weight: 56.2 kg

DRUGS (2)
  1. TRASTUZUMAB DERUXTECAN [Suspect]
     Active Substance: TRASTUZUMAB DERUXTECAN
     Indication: Neoplasm
     Dosage: 200 MG, SINGLE
     Route: 041
     Dates: start: 20240801, end: 20240801
  2. DEXTROSE [Concomitant]
     Active Substance: DEXTROSE\DEXTROSE MONOHYDRATE
     Indication: Vehicle solution use
     Dosage: 250 ML, SINGLE
     Route: 041
     Dates: start: 20240801, end: 20240801

REACTIONS (1)
  - Myelosuppression [Unknown]

NARRATIVE: CASE EVENT DATE: 20240809
